FAERS Safety Report 7349795-8 (Version None)
Quarter: 2011Q1

REPORT INFORMATION
  Report Type: 
  Country: None (occurrence: None)
  Receive Date: 20110314
  Receipt Date: 20110303
  Transmission Date: 20110831
  Serious: Yes (Other)
  Sender: FDA-Public Use
  Company Number: US-ROCHE-552251

PATIENT
  Sex: Male
  Weight: 74.8 kg

DRUGS (3)
  1. ACCUTANE [Suspect]
     Indication: ACNE
     Dosage: REPORTED AS 40MG 2 WEEK 1, 3 WEEK 2, 4 WEEK 3. 20 MAY 1998 INCREASE TO 40MG QD.
     Route: 065
     Dates: start: 19980422, end: 19980603
  2. ACCUTANE [Suspect]
     Dosage: REPORTED AS 40MG QOD. ON 15 JULY 1998 INCREASED TO 40/80/40MG QD. ON APPROX. 7 SEPT 1998 40MG BID
     Route: 065
     Dates: start: 19980617, end: 19980926
  3. DIFFERIN [Concomitant]

REACTIONS (9)
  - HAEMORRHOIDS [None]
  - RASH [None]
  - LIP DRY [None]
  - ANAL FISSURE [None]
  - INFLAMMATORY BOWEL DISEASE [None]
  - CROHN'S DISEASE [None]
  - BACK PAIN [None]
  - NASAL DRYNESS [None]
  - GASTROOESOPHAGEAL REFLUX DISEASE [None]
